FAERS Safety Report 15428854 (Version 1)
Quarter: 2018Q3

REPORT INFORMATION
  Report Type: Spontaneous
  Country: US (occurrence: US)
  Receive Date: 20180926
  Receipt Date: 20180926
  Transmission Date: 20181010
  Serious: No
  Sender: FDA-Public Use
  Company Number: US-BAUSCH-BL-2018-026029

PATIENT
  Age: 46 Year
  Sex: Female

DRUGS (3)
  1. XIFAXAN [Suspect]
     Active Substance: RIFAXIMIN
     Indication: GASTROINTESTINAL BACTERIAL OVERGROWTH
     Route: 048
     Dates: start: 201710, end: 2017
  2. XIFAXAN [Suspect]
     Active Substance: RIFAXIMIN
     Indication: PRODUCT USE IN UNAPPROVED INDICATION
     Route: 048
     Dates: start: 2017, end: 2017
  3. XIFAXAN [Suspect]
     Active Substance: RIFAXIMIN
     Dosage: 10 DAYS EVERY MONTH
     Route: 048
     Dates: start: 2017, end: 2018

REACTIONS (4)
  - Drug effect incomplete [Recovered/Resolved]
  - Suspected counterfeit product [Recovered/Resolved]
  - Insurance issue [Not Recovered/Not Resolved]
  - Product use in unapproved indication [Recovered/Resolved]

NARRATIVE: CASE EVENT DATE: 2017
